FAERS Safety Report 6644543-9 (Version None)
Quarter: 2010Q1

REPORT INFORMATION
  Report Type: 
  Country: None (occurrence: None)
  Receive Date: 20100304
  Receipt Date: 20081113
  Transmission Date: 20100710
  Serious: Yes (Life-Threatening, Hospitalization)
  Sender: FDA-Public Use
  Company Number: US-002159

PATIENT
  Age: 78 Year
  Sex: Male
  Weight: 114 kg

DRUGS (7)
  1. ISOVUE-300 [Suspect]
     Indication: ABDOMINAL PAIN
     Dosage: 100ML QD INTRAVENOUS
     Route: 042
     Dates: start: 20081113, end: 20081113
  2. ISOVUE-300 [Suspect]
     Indication: COMPUTERISED TOMOGRAM
     Dosage: 100ML QD INTRAVENOUS
     Route: 042
     Dates: start: 20081113, end: 20081113
  3. TOPROL (METOPROLOL TARTRATE) [Concomitant]
  4. LIPITOR [Concomitant]
  5. ALTACE [Concomitant]
  6. ASPIRIN [Concomitant]
  7. MULTIVITAMIN [Concomitant]

REACTIONS (3)
  - ANAPHYLACTIC SHOCK [None]
  - CARDIAC ARREST [None]
  - MYOCARDIAL INFARCTION [None]
